FAERS Safety Report 4318714-0 (Version None)
Quarter: 2004Q1

REPORT INFORMATION
  Report Type: 
  Country: None (occurrence: None)
  Receive Date: 20040315
  Receipt Date: 20040308
  Transmission Date: 20041129
  Serious: Yes (Hospitalization, Disabling)
  Sender: FDA-Public Use
  Company Number: 2004-03-0505

PATIENT
  Age: 40 Year
  Sex: Male

DRUGS (3)
  1. INTRON A [Suspect]
     Indication: HEPATITIS C
     Dosage: 6 MU INTRAMUSCULAR
     Route: 030
     Dates: start: 20031110, end: 20040306
  2. REBETOL [Suspect]
     Indication: HEPATITIS C
     Dosage: 600 MG QD ORAL
     Route: 048
     Dates: start: 20031110, end: 20040306
  3. REBETOL [Suspect]
     Indication: HEPATITIS C
     Dosage: 600 MG QD ORAL
     Route: 048
     Dates: start: 20031110, end: 20040306

REACTIONS (2)
  - HEMIPLEGIA [None]
  - PUTAMEN HAEMORRHAGE [None]
